FAERS Safety Report 21737969 (Version 3)
Quarter: 2023Q1

REPORT INFORMATION
  Report Type: Spontaneous
  Country: US (occurrence: US)
  Receive Date: 20221216
  Receipt Date: 20230223
  Transmission Date: 20230418
  Serious: Yes (Other)
  Sender: FDA-Public Use
  Company Number: US-ENDO PHARMACEUTICALS INC-2022-002470

PATIENT
  Age: 69 Year
  Sex: Male
  Weight: 92.971 kg

DRUGS (10)
  1. XIAFLEX [Suspect]
     Active Substance: COLLAGENASE CLOSTRIDIUM HISTOLYTICUM
     Indication: Peyronie^s disease
     Dosage: UNK UNKNOWN, UNKNOWN (CYCLE ONE, INJECTION ONE)
     Route: 051
     Dates: start: 20201215
  2. XIAFLEX [Suspect]
     Active Substance: COLLAGENASE CLOSTRIDIUM HISTOLYTICUM
     Dosage: UNK UNKNOWN, UNKNOWN (CYCLE ONE, INJECTION TWO)
     Route: 051
     Dates: start: 20201217
  3. XIAFLEX [Suspect]
     Active Substance: COLLAGENASE CLOSTRIDIUM HISTOLYTICUM
     Dosage: UNK UNKNOWN, UNKNOWN (CYCLE TWO, INJECTION ONE)
     Route: 051
     Dates: start: 20210128
  4. XIAFLEX [Suspect]
     Active Substance: COLLAGENASE CLOSTRIDIUM HISTOLYTICUM
     Dosage: UNK UNKNOWN, UNKNOWN (CYCLE TWO, INJECTION TWO)
     Route: 051
     Dates: start: 20210201
  5. XIAFLEX [Suspect]
     Active Substance: COLLAGENASE CLOSTRIDIUM HISTOLYTICUM
     Dosage: UNK UNKNOWN, UNKNOWN (CYCLE THREE, INJECTION ONE)
     Route: 051
     Dates: start: 20210420
  6. XIAFLEX [Suspect]
     Active Substance: COLLAGENASE CLOSTRIDIUM HISTOLYTICUM
     Dosage: UNK UNKNOWN, UNKNOWN (CYCLE THREE, INJECTION TWO)
     Route: 051
     Dates: start: 20210422
  7. XIAFLEX [Suspect]
     Active Substance: COLLAGENASE CLOSTRIDIUM HISTOLYTICUM
     Dosage: UNK UNKNOWN, UNKNOWN (2ND TREATMENT COURSE, CYCLE ONE, INJECTION ONE)
     Route: 051
     Dates: start: 20230127
  8. XIAFLEX [Suspect]
     Active Substance: COLLAGENASE CLOSTRIDIUM HISTOLYTICUM
     Dosage: UNK UNKNOWN, UNKNOWN (2ND TREATMENT COURSE, CYCLE ONE, INJECTION TWO)
     Route: 051
     Dates: start: 20230130
  9. GENERIC STATIN [Concomitant]
     Indication: Hypertension
     Dosage: 10 MG, UNKNOWN
     Route: 065
     Dates: start: 2020
  10. GENERIC STATIN [Concomitant]
     Indication: Blood cholesterol increased

REACTIONS (8)
  - Hydrocele [Recovered/Resolved]
  - Swelling [Recovered/Resolved]
  - Haemorrhage [Recovered/Resolved]
  - Contusion [Recovered/Resolved]
  - Procedural pain [Recovered/Resolved]
  - Drug ineffective [Unknown]
  - Inappropriate schedule of product administration [Recovered/Resolved]
  - Product administered at inappropriate site [Unknown]

NARRATIVE: CASE EVENT DATE: 20201201
